FAERS Safety Report 9522277 (Version 8)
Quarter: 2013Q4

REPORT INFORMATION
  Report Type: Spontaneous
  Country: GB (occurrence: GB)
  Receive Date: 20130913
  Receipt Date: 20131205
  Transmission Date: 20140711
  Serious: Yes (Life-Threatening, Hospitalization, Other)
  Sender: FDA-Public Use
  Company Number: PHFR2013GB005165

PATIENT
  Age: 48 Year
  Sex: Male

DRUGS (5)
  1. CLOZARIL [Suspect]
     Indication: SCHIZOPHRENIA
     Dosage: UNK
     Route: 048
     Dates: start: 20030801
  2. CLOZARIL [Suspect]
     Dosage: UNK
     Dates: start: 20130908
  3. CLOZARIL [Suspect]
     Dosage: UNK
     Dates: start: 20130913
  4. CLOZARIL [Suspect]
     Dosage: UNK
     Dates: end: 20130917
  5. HALOPERIDOL [Suspect]
     Dosage: UNK UKN, UNK

REACTIONS (18)
  - Neuroleptic malignant syndrome [Recovering/Resolving]
  - Tachycardia [Recovering/Resolving]
  - Hyperhidrosis [Recovering/Resolving]
  - Blood creatine phosphokinase increased [Recovered/Resolved]
  - Nephrolithiasis [Recovering/Resolving]
  - Abdominal pain [Recovering/Resolving]
  - Malaise [Recovering/Resolving]
  - Urosepsis [Recovering/Resolving]
  - Local swelling [Unknown]
  - Mental impairment [Recovering/Resolving]
  - Pulmonary embolism [Unknown]
  - Pyrexia [Recovering/Resolving]
  - Intestinal obstruction [Recovering/Resolving]
  - Constipation [Recovering/Resolving]
  - Pneumonia [Recovering/Resolving]
  - Platelet count increased [Recovering/Resolving]
  - White blood cell count increased [Recovering/Resolving]
  - Neutrophil count increased [Recovering/Resolving]
